FAERS Safety Report 21769803 (Version 2)
Quarter: 2023Q1

REPORT INFORMATION
  Report Type: Spontaneous
  Country: US (occurrence: US)
  Receive Date: 20221223
  Receipt Date: 20230131
  Transmission Date: 20230418
  Serious: Yes (Other)
  Sender: FDA-Public Use
  Company Number: US-GILEAD-2022-0610345

PATIENT
  Age: 56 Year
  Sex: Male

DRUGS (3)
  1. TRUVADA [Suspect]
     Active Substance: EMTRICITABINE\TENOFOVIR DISOPROXIL FUMARATE
     Indication: HIV infection
     Dosage: UNK
     Route: 048
     Dates: start: 20160101, end: 20191231
  2. TRUVADA [Suspect]
     Active Substance: EMTRICITABINE\TENOFOVIR DISOPROXIL FUMARATE
     Dosage: UNK
     Route: 048
     Dates: start: 2005, end: 20180113
  3. BIKTARVY [Concomitant]
     Active Substance: BICTEGRAVIR SODIUM\EMTRICITABINE\TENOFOVIR ALAFENAMIDE FUMARATE

REACTIONS (9)
  - Osteonecrosis [Not Recovered/Not Resolved]
  - Renal failure [Unknown]
  - Shoulder operation [Not Recovered/Not Resolved]
  - Bone density decreased [Unknown]
  - Bone loss [Not Recovered/Not Resolved]
  - Tooth loss [Unknown]
  - Blood creatinine increased [Not Recovered/Not Resolved]
  - Osteopenia [Not Recovered/Not Resolved]
  - Tooth extraction [Not Recovered/Not Resolved]

NARRATIVE: CASE EVENT DATE: 20180416
